FAERS Safety Report 10246306 (Version 1)
Quarter: 2014Q2

REPORT INFORMATION
  Report Type: Report from Study
  Country: US (occurrence: US)
  Receive Date: 20140619
  Receipt Date: 20140619
  Transmission Date: 20141212
  Serious: Yes (Hospitalization, Other)
  Sender: FDA-Public Use
  Company Number: US-ABBVIE-14P-163-1247357-00

PATIENT
  Age: 30 Year
  Sex: Female

DRUGS (6)
  1. HUMIRA [Suspect]
     Indication: ANKYLOSING SPONDYLITIS
     Dates: start: 201112, end: 201212
  2. HUMIRA [Suspect]
     Indication: PSORIATIC ARTHROPATHY
     Dosage: TWO INJECTIONS
     Dates: start: 2012
  3. HUMIRA [Suspect]
     Dosage: TWO INJECTIONS
     Dates: start: 20140523
  4. KEPPRA [Suspect]
     Indication: CONVULSION
  5. IRON SUPPLEMENT [Concomitant]
     Indication: PRODUCT USED FOR UNKNOWN INDICATION
  6. TYLENOL [Concomitant]
     Indication: PRODUCT USED FOR UNKNOWN INDICATION
     Dosage: AS NEEDED

REACTIONS (15)
  - Generalised tonic-clonic seizure [Unknown]
  - Hypertension [Unknown]
  - Drug ineffective [Unknown]
  - Sleep disorder [Unknown]
  - Cervical incompetence [Unknown]
  - Premature labour [Unknown]
  - Pre-eclampsia [Unknown]
  - Premature labour [Unknown]
  - Anger [Unknown]
  - Amnesia [Unknown]
  - Premature separation of placenta [Unknown]
  - Pain in extremity [Unknown]
  - Hypertension [Unknown]
  - Gestational diabetes [Recovering/Resolving]
  - Foetal placental thrombosis [Unknown]
